FAERS Safety Report 8389285-7 (Version None)
Quarter: 2012Q2

REPORT INFORMATION
  Report Type: 
  Country: None (occurrence: None)
  Receive Date: 20120528
  Receipt Date: 20120516
  Transmission Date: 20120825
  Serious: Yes (Other)
  Sender: FDA-Public Use
  Company Number: US-BAYER-2012-049831

PATIENT
  Age: 82 Year
  Sex: Female
  Weight: 59 kg

DRUGS (1)
  1. NAPROXEN SODIUM [Suspect]
     Indication: ANALGESIC THERAPY
     Dosage: 2 DF, QD
     Route: 048
     Dates: start: 20120416

REACTIONS (1)
  - AMNESIA [None]
